FAERS Safety Report 4656789-X (Version None)
Quarter: 2005Q2

REPORT INFORMATION
  Report Type: 
  Country: None (occurrence: None)
  Receive Date: 20050506
  Receipt Date: 20050427
  Transmission Date: 20051028
  Serious: Yes (Other)
  Sender: FDA-Public Use
  Company Number: 2005-04-1911

PATIENT
  Age: 51 Year
  Sex: Male

DRUGS (1)
  1. INTERFERON ALFA INJECTABLE [Suspect]
     Indication: HEPATITIS C
     Dosage: INTRAMUSCULAR
     Route: 030
     Dates: start: 20030501

REACTIONS (3)
  - BUTTOCK PAIN [None]
  - INJECTION SITE NECROSIS [None]
  - INJECTION SITE ULCER [None]
